FAERS Safety Report 10047862 (Version 1)
Quarter: 2014Q1

REPORT INFORMATION
  Report Type: Spontaneous
  Country: US (occurrence: US)
  Receive Date: 20140331
  Receipt Date: 20140331
  Transmission Date: 20141002
  Serious: Yes (Hospitalization)
  Sender: FDA-Public Use
  Company Number: US-B.I. PHARMACEUTICALS,INC./RIDGEFIELD-2014-BI-13170BP

PATIENT
  Age: 61 Year
  Sex: Male
  Weight: 108.63 kg

DRUGS (11)
  1. PRADAXA [Suspect]
     Indication: ATRIAL FIBRILLATION
     Dosage: 300 MG
     Route: 048
     Dates: start: 2012
  2. CARVEDILOL [Concomitant]
     Indication: ATRIAL FIBRILLATION
     Dosage: 50 MG
     Route: 048
  3. CARVEDILOL [Concomitant]
     Indication: HYPERTENSION
  4. LASIX [Concomitant]
     Indication: ATRIAL FIBRILLATION
     Dosage: 40 MG
     Route: 048
  5. LASIX [Concomitant]
     Indication: HYPERTENSION
  6. LIPITOR [Concomitant]
     Indication: BLOOD CHOLESTEROL INCREASED
     Dosage: 40 MG
     Route: 048
  7. LISINOPRIL [Concomitant]
     Indication: ATRIAL FIBRILLATION
     Dosage: 2.5 MG
     Route: 048
  8. LISINOPRIL [Concomitant]
     Indication: HYPERTENSION
  9. SYNTHROID [Concomitant]
     Indication: HYPOTHYROIDISM
     Dosage: 75 MCG
     Route: 048
  10. DIGOXIN [Concomitant]
     Indication: ATRIAL FIBRILLATION
     Dosage: 0.25 MG
     Route: 048
  11. METFORMIN [Concomitant]
     Indication: DIABETES MELLITUS
     Dosage: 500 MG
     Route: 048

REACTIONS (3)
  - Gastrointestinal haemorrhage [Recovered/Resolved]
  - Fall [Recovered/Resolved]
  - Haematoma [Recovered/Resolved]
